FAERS Safety Report 23832478 (Version 1)
Quarter: 2024Q2

REPORT INFORMATION
  Report Type: Spontaneous
  Country: US (occurrence: US)
  Receive Date: 20240508
  Receipt Date: 20240508
  Transmission Date: 20240717
  Serious: No
  Sender: FDA-Public Use
  Company Number: US-SA-SAC20240429001112

PATIENT
  Age: 16 Year
  Sex: Female
  Weight: 73 kg

DRUGS (3)
  1. DUPIXENT [Suspect]
     Active Substance: DUPILUMAB
     Indication: Dermatitis atopic
     Dosage: 300MG , QOW
     Route: 058
     Dates: start: 20230329
  2. ADBRY [Concomitant]
     Active Substance: TRALOKINUMAB-LDRM
  3. AQUAPHOR [WHITE SOFT PARAFFIN] [Concomitant]

REACTIONS (1)
  - Epistaxis [Unknown]
